FAERS Safety Report 5927123-X (Version None)
Quarter: 2008Q4

REPORT INFORMATION
  Report Type: 
  Country: None (occurrence: None)
  Receive Date: 20081022
  Receipt Date: 20081010
  Transmission Date: 20090506
  Serious: Yes (Other)
  Sender: FDA-Public Use
  Company Number: US-PFIZER INC-2008070068

PATIENT
  Sex: Female
  Weight: 104.3 kg

DRUGS (8)
  1. CHANTIX [Suspect]
     Indication: SMOKING CESSATION THERAPY
     Dates: start: 20080701
  2. VALSARTAN [Concomitant]
  3. PLAQUENIL [Concomitant]
  4. LEVOTHYROXINE SODIUM [Concomitant]
  5. VERAMYST [Concomitant]
  6. AZMACORT [Concomitant]
  7. ACETYLSALICYLIC ACID SRT [Concomitant]
  8. CELEXA [Concomitant]

REACTIONS (2)
  - DEPRESSION [None]
  - DYSURIA [None]
